FAERS Safety Report 9657325 (Version 1)
Quarter: 2013Q4

REPORT INFORMATION
  Report Type: Spontaneous
  Country: FR (occurrence: FR)
  Receive Date: 20131030
  Receipt Date: 20131030
  Transmission Date: 20140711
  Serious: Yes (Death)
  Sender: FDA-Public Use
  Company Number: FR-SA-2013SA107035

PATIENT
  Age: 85 Year
  Sex: Female
  Weight: 45 kg

DRUGS (10)
  1. RIFATER [Suspect]
     Indication: TUBERCULOSIS
     Dosage: DOSE:5 UNIT(S)
     Route: 048
     Dates: start: 20130725, end: 20130815
  2. DEXAMBUTOL [Concomitant]
     Indication: TUBERCULOSIS
     Dosage: DOSE:1.5 UNIT(S)
     Route: 048
     Dates: start: 20130725, end: 20130815
  3. OROCAL D(3) [Concomitant]
     Route: 048
  4. AERIUS [Concomitant]
     Dosage: STRENGTH: 5 MG
     Route: 048
  5. SYMBICORT [Concomitant]
     Dosage: STRENGTH: 400 MCG
  6. DIFFU K [Concomitant]
     Dosage: STRENGTH: 600 MG
     Route: 048
  7. RAMIPRIL [Concomitant]
     Dosage: STRENGTH: 1.25 MG
     Route: 048
  8. CELLUVISC [Concomitant]
  9. BACTRIM FORTE [Concomitant]
     Dosage: DOSE:3 UNIT(S)
     Route: 048
  10. BECILAN [Concomitant]
     Dosage: DOSE:3 UNIT(S)
     Route: 048
     Dates: start: 20130725

REACTIONS (1)
  - Completed suicide [Fatal]
